FAERS Safety Report 13935922 (Version 1)
Quarter: 2017Q3

REPORT INFORMATION
  Report Type: Spontaneous
  Country: US (occurrence: US)
  Receive Date: 20170904
  Receipt Date: 20170904
  Transmission Date: 20171127
  Serious: Yes (Other)
  Sender: FDA-Public Use
  Company Number: None

PATIENT
  Age: 64 Year
  Sex: Female
  Weight: 67.5 kg

DRUGS (5)
  1. PLAVIX [Concomitant]
     Active Substance: CLOPIDOGREL BISULFATE
  2. VITAMIN D [Concomitant]
     Active Substance: CHOLECALCIFEROL
  3. FYCOMPA [Suspect]
     Active Substance: PERAMPANEL
     Indication: SEIZURE
     Route: 048
     Dates: start: 20170721, end: 20170828
  4. GABAPENTIN. [Concomitant]
     Active Substance: GABAPENTIN
  5. NARCO [Concomitant]

REACTIONS (3)
  - Feeling hot [None]
  - Homicidal ideation [None]
  - Aggression [None]

NARRATIVE: CASE EVENT DATE: 20170729
